FAERS Safety Report 6192466-4 (Version None)
Quarter: 2009Q2

REPORT INFORMATION
  Report Type: 
  Country: None (occurrence: None)
  Receive Date: 20090518
  Receipt Date: 20090514
  Transmission Date: 20091009
  Serious: Yes (Life-Threatening)
  Sender: FDA-Public Use
  Company Number: BE-ASTRAZENECA-2009AC01402

PATIENT
  Sex: Female

DRUGS (2)
  1. NOLVADEX [Suspect]
     Route: 065
  2. MARCUMAR [Interacting]
     Route: 065

REACTIONS (2)
  - DRUG INTERACTION [None]
  - INTERNATIONAL NORMALISED RATIO [None]
